FAERS Safety Report 16630137 (Version 1)
Quarter: 2019Q3

REPORT INFORMATION
  Report Type: Spontaneous
  Country: US (occurrence: US)
  Receive Date: 20190612
  Receipt Date: 20190612
  Transmission Date: 20191004
  Serious: No
  Sender: FDA-Public Use
  Company Number: None

PATIENT

DRUGS (1)
  1. RELAX FULL SPECTRUM CBD OIL [Suspect]
     Active Substance: CANNABIDIOL\HERBALS
     Dates: start: 20190604, end: 20190605

REACTIONS (4)
  - Dizziness [None]
  - Vomiting [None]
  - Product physical consistency issue [None]
  - Product complaint [None]

NARRATIVE: CASE EVENT DATE: 20190611
